FAERS Safety Report 7983420-8 (Version None)
Quarter: 2011Q4

REPORT INFORMATION
  Report Type: 
  Country: None (occurrence: None)
  Receive Date: 20111215
  Receipt Date: 20111208
  Transmission Date: 20120403
  Serious: Yes (Hospitalization)
  Sender: FDA-Public Use
  Company Number: CHPA2011US017781

PATIENT
  Age: 21 Year
  Sex: Female
  Weight: 70 kg

DRUGS (7)
  1. ACETYLCYSTEINE [Suspect]
     Dosage: 50 MG/KG OVER 20 MINUTES
     Route: 042
  2. SERTRALINE HYDROCHLORIDE [Concomitant]
  3. ACETAMINOPHEN [Suspect]
     Dosage: UNK, UNK
     Route: 048
  4. ACETYLCYSTEINE [Suspect]
     Dosage: 150 MG/KG FOR 1 HOUR
     Route: 042
  5. VENLAFAXINE [Concomitant]
  6. MONTELUKAST SODIUM [Concomitant]
  7. ETHANOL [Suspect]
     Dosage: UNK, UNK
     Route: 048

REACTIONS (16)
  - HAEMOLYTIC URAEMIC SYNDROME [None]
  - TACHYCARDIA [None]
  - HAEMOGLOBIN DECREASED [None]
  - RED BLOOD CELLS URINE POSITIVE [None]
  - RED BLOOD CELL SCHISTOCYTES PRESENT [None]
  - NAUSEA [None]
  - VOMITING [None]
  - ASPARTATE AMINOTRANSFERASE INCREASED [None]
  - WRONG TECHNIQUE IN DRUG USAGE PROCESS [None]
  - HYPOTENSION [None]
  - SUICIDE ATTEMPT [None]
  - ALANINE AMINOTRANSFERASE INCREASED [None]
  - OVERDOSE [None]
  - HAEMATOCRIT DECREASED [None]
  - BLOOD CREATININE INCREASED [None]
  - DYSPNOEA [None]
